FAERS Safety Report 18595265 (Version 10)
Quarter: 2022Q3

REPORT INFORMATION
  Report Type: Other
  Country: DE (occurrence: None)
  Receive Date: 20201209
  Receipt Date: 20220907
  Transmission Date: 20221026
  Serious: Yes (Other)
  Sender: FDA-Public Use
  Company Number: DE-ROCHE-2723168

PATIENT
  Age: 69 Year
  Sex: Male

DRUGS (14)
  1. MABTHERA [Suspect]
     Active Substance: RITUXIMAB
     Indication: Non-Hodgkin^s lymphoma
     Dosage: IN COMBINATION WITH CHOP
     Route: 042
     Dates: start: 2008
  2. MABTHERA [Suspect]
     Active Substance: RITUXIMAB
     Dosage: IN COMBINATION WITH CHOP
     Route: 042
     Dates: start: 2009
  3. MABTHERA [Suspect]
     Active Substance: RITUXIMAB
     Dosage: TWO CYCLES AS MONOTHERAPY
     Route: 042
  4. CYCLOPHOSPHAMIDE [Suspect]
     Active Substance: CYCLOPHOSPHAMIDE
     Indication: Non-Hodgkin^s lymphoma
     Route: 042
     Dates: start: 2008
  5. CYCLOPHOSPHAMIDE [Suspect]
     Active Substance: CYCLOPHOSPHAMIDE
     Route: 042
     Dates: start: 2009
  6. DOXORUBICIN HYDROCHLORIDE [Suspect]
     Active Substance: DOXORUBICIN HYDROCHLORIDE
     Indication: Non-Hodgkin^s lymphoma
     Route: 042
     Dates: start: 2008
  7. DOXORUBICIN HYDROCHLORIDE [Suspect]
     Active Substance: DOXORUBICIN HYDROCHLORIDE
     Route: 042
     Dates: start: 2009
  8. PREDNISOLONE [Suspect]
     Active Substance: PREDNISOLONE
     Indication: Non-Hodgkin^s lymphoma
     Route: 042
     Dates: start: 2008
  9. PREDNISOLONE [Suspect]
     Active Substance: PREDNISOLONE
     Route: 042
     Dates: start: 2009
  10. VINCRISTINE SULFATE [Suspect]
     Active Substance: VINCRISTINE SULFATE
     Indication: Non-Hodgkin^s lymphoma
     Route: 042
     Dates: start: 2008
  11. VINCRISTINE SULFATE [Suspect]
     Active Substance: VINCRISTINE SULFATE
     Route: 042
     Dates: start: 2009
  12. RIBAVIRIN [Suspect]
     Active Substance: RIBAVIRIN
     Indication: Hepatitis E
     Dosage: THERAPY ADAPTED TO THE PATIENT^S WEIGHT FOR 3 MONTHS
     Route: 065
  13. RIBAVIRIN [Suspect]
     Active Substance: RIBAVIRIN
     Dosage: FURTHER THERAPY FOR 4 MONTHS
     Route: 065
  14. RIBAVIRIN [Suspect]
     Active Substance: RIBAVIRIN
     Route: 065

REACTIONS (10)
  - Hepatitis E [Unknown]
  - Suspected transmission of an infectious agent via product [Unknown]
  - Hypogammaglobulinaemia [Unknown]
  - B-lymphocyte count decreased [Unknown]
  - Lymphopenia [Unknown]
  - CD4 lymphocyte percentage decreased [Unknown]
  - Off label use [Unknown]
  - Fatigue [Unknown]
  - Insomnia [Unknown]
  - Drug resistance [Unknown]
